FAERS Safety Report 4342039-0 (Version None)
Quarter: 2004Q2

REPORT INFORMATION
  Report Type: 
  Country: None (occurrence: None)
  Receive Date: 20040415
  Receipt Date: 20040402
  Transmission Date: 20050107
  Serious: Yes (Other)
  Sender: FDA-Public Use
  Company Number: 2004017487

PATIENT
  Sex: Female
  Weight: 97.5234 kg

DRUGS (11)
  1. ZOLOFT [Suspect]
     Indication: DEPRESSION
  2. TIZANIDINE HCL [Suspect]
     Indication: PAIN
  3. ACETYLSALICYLIC ACID (ACETYLSALICYKLIC ACID) [Concomitant]
  4. OTHER RESPIRATORY SYSTEM PRODUCTS (OTHER RESPIRATORY SYSTEM PRODUCTS) [Concomitant]
  5. OMEPRAZOLE [Concomitant]
  6. AMLODIPINE BESYLATE [Concomitant]
  7. DIGOXIN [Concomitant]
  8. TRAZODONE HCL [Concomitant]
  9. OXYCODONE HCL [Concomitant]
  10. DIAZEPAM [Concomitant]
  11. FUROSEMIDE [Concomitant]

REACTIONS (15)
  - APHASIA [None]
  - CONVULSION [None]
  - DRUG WITHDRAWAL SYNDROME [None]
  - DYSKINESIA [None]
  - DYSPNOEA [None]
  - FATIGUE [None]
  - HYPOAESTHESIA [None]
  - MUSCLE RIGIDITY [None]
  - MYOTONIA [None]
  - NERVE INJURY [None]
  - PARAESTHESIA [None]
  - PARALYSIS [None]
  - PROCEDURAL COMPLICATION [None]
  - RESPIRATORY RATE INCREASED [None]
  - SOMNOLENCE [None]
